FAERS Safety Report 6699727-0 (Version None)
Quarter: 2010Q2

REPORT INFORMATION
  Report Type: 
  Country: None (occurrence: None)
  Receive Date: 20100428
  Receipt Date: 20100420
  Transmission Date: 20101027
  Serious: No
  Sender: FDA-Public Use
  Company Number: 2009BI028855

PATIENT
  Age: 51 Year
  Sex: Male

DRUGS (1)
  1. TYSABRI [Suspect]
     Indication: MULTIPLE SCLEROSIS
     Route: 042
     Dates: start: 20070213, end: 20090730

REACTIONS (5)
  - DRUG INEFFECTIVE [None]
  - GAIT DISTURBANCE [None]
  - HYPOAESTHESIA [None]
  - MUSCLE SPASMS [None]
  - PRIMARY PROGRESSIVE MULTIPLE SCLEROSIS [None]
